FAERS Safety Report 20876653 (Version 2)
Quarter: 2022Q2

REPORT INFORMATION
  Report Type: Report from Study
  Country: FR (occurrence: None)
  Receive Date: 20220526
  Receipt Date: 20220622
  Transmission Date: 20220721
  Serious: Yes (Hospitalization, Other)
  Sender: FDA-Public Use
  Company Number: 2022A043427

PATIENT
  Age: 27747 Day
  Sex: Male

DRUGS (4)
  1. EVUSHELD [Suspect]
     Active Substance: CILGAVIMAB\TIXAGEVIMAB
     Indication: COVID-19 prophylaxis
     Route: 065
     Dates: start: 20220120
  2. METFORMIN [Concomitant]
     Active Substance: METFORMIN HYDROCHLORIDE
  3. UNSPECIFIED INGREDIENT [Concomitant]
     Active Substance: UNSPECIFIED INGREDIENT
  4. RITUXIMAB [Concomitant]
     Active Substance: RITUXIMAB

REACTIONS (4)
  - Pulmonary oedema [Recovering/Resolving]
  - Cardiac disorder [Not Recovered/Not Resolved]
  - Fall [Unknown]
  - General physical health deterioration [Unknown]

NARRATIVE: CASE EVENT DATE: 20220120
